APPROVED DRUG PRODUCT: COPAXONE
Active Ingredient: GLATIRAMER ACETATE
Strength: 20MG/ML
Dosage Form/Route: INJECTABLE;SUBCUTANEOUS
Application: N020622 | Product #002 | TE Code: AP
Applicant: TEVA PHARMACEUTICALS USA
Approved: Feb 12, 2002 | RLD: Yes | RS: Yes | Type: RX